FAERS Safety Report 10356361 (Version 1)
Quarter: 2014Q3

REPORT INFORMATION
  Report Type: Spontaneous
  Country: IT (occurrence: IT)
  Receive Date: 20140801
  Receipt Date: 20140801
  Transmission Date: 20150326
  Serious: Yes (Life-Threatening)
  Sender: FDA-Public Use
  Company Number: IT-ASTRAZENECA-2014SE55347

PATIENT
  Age: 23663 Day
  Sex: Female

DRUGS (7)
  1. CARDIOASPIRIN (ASA) [Concomitant]
     Indication: THROMBOSIS PROPHYLAXIS
     Route: 048
  2. ZOLOFT(SERTRALINE) [Concomitant]
     Indication: MAJOR DEPRESSION
     Route: 048
  3. LOSAPRES (LOSARTAN) [Concomitant]
     Indication: HYPERTENSION
     Route: 048
  4. LASIX [Concomitant]
     Active Substance: FUROSEMIDE
     Indication: OEDEMA PERIPHERAL
     Route: 048
  5. SEROQUEL [Suspect]
     Active Substance: QUETIAPINE FUMARATE
     Indication: DEPRESSION
     Route: 048
     Dates: start: 20140708, end: 20140708
  6. CARDICOR (BISOPROLOL) [Concomitant]
     Indication: CARDIAC FAILURE CHRONIC
     Route: 048
  7. EN [Concomitant]
     Active Substance: DELORAZEPAM
     Indication: ANXIETY
     Route: 048

REACTIONS (4)
  - Acute respiratory failure [Not Recovered/Not Resolved]
  - Lethargy [None]
  - Sopor [Not Recovered/Not Resolved]
  - Coma [Not Recovered/Not Resolved]

NARRATIVE: CASE EVENT DATE: 20140708
